FAERS Safety Report 5164107-6 (Version None)
Quarter: 2006Q4

REPORT INFORMATION
  Report Type: 
  Country: None (occurrence: None)
  Receive Date: 20061124
  Receipt Date: 20061116
  Transmission Date: 20070319
  Serious: Yes (Other)
  Sender: FDA-Public Use
  Company Number: 2006130229

PATIENT
  Age: 34 Year
  Sex: Female
  Weight: 61.2356 kg

DRUGS (1)
  1. LUBRIDERM [Suspect]
     Indication: DRY SKIN
     Dosage: ^LIBERALLY^ ONCE, TOPICAL
     Route: 061
     Dates: start: 20061024, end: 20061024

REACTIONS (5)
  - APPLICATION SITE RASH [None]
  - PRURITUS [None]
  - RASH MACULO-PAPULAR [None]
  - SELF-MEDICATION [None]
  - URTICARIA [None]
